FAERS Safety Report 11362950 (Version 1)
Quarter: 2015Q3

REPORT INFORMATION
  Report Type: Spontaneous
  Country: US (occurrence: None)
  Receive Date: 20150807
  Receipt Date: 20150807
  Transmission Date: 20151125
  Serious: Yes (Other)
  Sender: FDA-Public Use
  Company Number: TPU2015-00396

PATIENT
  Age: 57 Year
  Sex: Female
  Weight: 43.55 kg

DRUGS (9)
  1. ACCOLATE (ZAFIRLUKAST) [Concomitant]
  2. TOPROL XL [Concomitant]
     Active Substance: METOPROLOL SUCCINATE
  3. PROCRIT [Concomitant]
     Active Substance: ERYTHROPOIETIN
  4. NAPROXEN (NAPROXEN) [Concomitant]
     Active Substance: NAPROXEN
  5. FENTANYL (FENTANYL) (POULTICE OR PATCH) [Concomitant]
     Active Substance: FENTANYL
  6. LIDODERM [Suspect]
     Active Substance: LIDOCAINE
     Indication: NEUROPATHY PERIPHERAL
     Dosage: 3 PLASTER, 1 IN 1 D, TOPICAL
     Route: 061
     Dates: start: 2005
  7. SYMBICORT [Concomitant]
     Active Substance: BUDESONIDE\FORMOTEROL FUMARATE DIHYDRATE
  8. NEUPOGEN (FILGRASTIM) [Concomitant]
     Active Substance: FILGRASTIM
  9. PREMARIN [Concomitant]
     Active Substance: ESTROGENS, CONJUGATED

REACTIONS (3)
  - Wrong technique in product usage process [None]
  - Mitral valve disease [None]
  - Supraventricular tachycardia [None]

NARRATIVE: CASE EVENT DATE: 2005
